FAERS Safety Report 9030696 (Version 1)
Quarter: 2013Q1

REPORT INFORMATION
  Report Type: Spontaneous
  Country: US (occurrence: US)
  Receive Date: 20130123
  Receipt Date: 20130123
  Transmission Date: 20140127
  Serious: Yes (Hospitalization, Other)
  Sender: FDA-Public Use
  Company Number: US-PFIZER INC-2013024059

PATIENT
  Age: 28 Year
  Sex: Male

DRUGS (8)
  1. ZITHROMAX [Suspect]
     Indication: UPPER RESPIRATORY TRACT INFECTION
     Dosage: 500 MG, ONE PILL
     Route: 048
     Dates: start: 20110517
  2. ZITHROMAX [Suspect]
     Indication: SINUSITIS
  3. AZITHROMYCIN [Suspect]
     Indication: UPPER RESPIRATORY TRACT INFECTION
     Dosage: 500 MG, ONE PILL
     Route: 048
     Dates: start: 20110517
  4. AZITHROMYCIN [Suspect]
     Indication: SINUSITIS
  5. LISINOPRIL [Concomitant]
     Indication: HYPERTENSION
     Dosage: 40 MG, 1X/DAY
     Route: 048
  6. LEXAPRO [Concomitant]
     Dosage: 20 MG, 1X/DAY
     Route: 048
  7. LORTAB [Concomitant]
     Dosage: 10/500, AS NEEDED FOR EVERY SIX HOURS
     Route: 048
  8. TYLENOL [Concomitant]
     Dosage: UNK

REACTIONS (2)
  - Stevens-Johnson syndrome [Recovering/Resolving]
  - Toxic epidermal necrolysis [Recovering/Resolving]
